FAERS Safety Report 4890960-7 (Version None)
Quarter: 2006Q1

REPORT INFORMATION
  Report Type: 
  Country: None (occurrence: None)
  Receive Date: 20060123
  Receipt Date: 20060109
  Transmission Date: 20060701
  Serious: Yes (Other)
  Sender: FDA-Public Use
  Company Number: 2005168804

PATIENT
  Age: 50 Year
  Sex: Male
  Weight: 77.1115 kg

DRUGS (6)
  1. LYRICA [Suspect]
     Indication: POST HERPETIC NEURALGIA
     Dosage: 150 MG (75 MG, 2 IN 1 D), ORAL
     Route: 048
     Dates: start: 20050101, end: 20051214
  2. NEURONTIN [Suspect]
     Indication: ILL-DEFINED DISORDER
  3. DURAGESIC-100 [Concomitant]
  4. TRILEPTAL [Suspect]
     Indication: ILL-DEFINED DISORDER
  5. TOPAMAX [Suspect]
     Indication: ILL-DEFINED DISORDER
  6. LAMICTAL [Suspect]
     Indication: ILL-DEFINED DISORDER

REACTIONS (13)
  - DEAFNESS [None]
  - DIARRHOEA [None]
  - DIZZINESS [None]
  - DRUG HYPERSENSITIVITY [None]
  - DRUG INTOLERANCE [None]
  - EAR PAIN [None]
  - HEADACHE [None]
  - HYPOACUSIS [None]
  - PARAESTHESIA ORAL [None]
  - PERIPHERAL COLDNESS [None]
  - PURPURA [None]
  - RETCHING [None]
  - TINNITUS [None]
